FAERS Safety Report 22274653 (Version 1)
Quarter: 2023Q2

REPORT INFORMATION
  Report Type: Report from Study
  Country: JP (occurrence: JP)
  Receive Date: 20230502
  Receipt Date: 20230502
  Transmission Date: 20230721
  Serious: Yes (Death, Other)
  Sender: FDA-Public Use
  Company Number: JP-JNJFOC-20230455452

PATIENT

DRUGS (3)
  1. REMICADE [Suspect]
     Active Substance: INFLIXIMAB
     Indication: Behcet^s syndrome
     Dosage: WEEKS 0, 2, AND 6 AND THEN EVERY 8  WEEKS THEREAFTER
     Route: 041
  2. REMICADE [Suspect]
     Active Substance: INFLIXIMAB
     Indication: Uveitis
  3. METHOTREXATE [Concomitant]
     Active Substance: METHOTREXATE
     Indication: Uveitis

REACTIONS (8)
  - Infection [Fatal]
  - Interstitial lung disease [Unknown]
  - Behcet^s syndrome [Unknown]
  - Mediastinum neoplasm [Unknown]
  - B-cell lymphoma [Unknown]
  - Infusion related reaction [Unknown]
  - Treatment failure [Unknown]
  - Off label use [Unknown]
